FAERS Safety Report 12275893 (Version 3)
Quarter: 2016Q2

REPORT INFORMATION
  Report Type: Report from Study
  Country: US (occurrence: US)
  Receive Date: 20160418
  Receipt Date: 20160503
  Transmission Date: 20160815
  Serious: Yes (Hospitalization, Other)
  Sender: FDA-Public Use
  Company Number: US-GILEAD-2016-0208750

PATIENT
  Age: 70 Year
  Sex: Male

DRUGS (18)
  1. REVATIO [Concomitant]
     Active Substance: SILDENAFIL CITRATE
  2. FUROSEMIDE. [Concomitant]
     Active Substance: FUROSEMIDE
  3. AMOXICILLIN. [Concomitant]
     Active Substance: AMOXICILLIN
  4. FLONASE                            /00908302/ [Concomitant]
     Active Substance: MOMETASONE FUROATE
  5. COMBIVENT RESPIMAT [Concomitant]
     Active Substance: ALBUTEROL SULFATE\IPRATROPIUM BROMIDE
  6. RED YEAST RICE [Concomitant]
     Active Substance: DIETARY SUPPLEMENT
  7. DILTIAZEM [Concomitant]
     Active Substance: DILTIAZEM
  8. WARFARIN [Concomitant]
     Active Substance: WARFARIN
  9. AMBRISENTAN [Suspect]
     Active Substance: AMBRISENTAN
     Indication: PRODUCT USED FOR UNKNOWN INDICATION
     Dosage: 5 MG, QD
     Route: 065
     Dates: start: 20120629
  10. METFORMIN [Concomitant]
     Active Substance: METFORMIN HYDROCHLORIDE
  11. LIPITOR [Concomitant]
     Active Substance: ATORVASTATIN CALCIUM
  12. FERROUS GLUCONATE [Concomitant]
     Active Substance: FERROUS GLUCONATE
  13. RANITIDINE. [Concomitant]
     Active Substance: RANITIDINE
  14. GLIPIZIDE XL [Concomitant]
     Active Substance: GLIPIZIDE
  15. IPRATROPIUM/ALBUTEROL [Concomitant]
     Active Substance: ALBUTEROL\IPRATROPIUM
  16. TIKOSYN [Concomitant]
     Active Substance: DOFETILIDE
  17. SINGULAIR [Concomitant]
     Active Substance: MONTELUKAST SODIUM
  18. DIOVAN [Concomitant]
     Active Substance: VALSARTAN

REACTIONS (7)
  - Dizziness [Unknown]
  - Fluid retention [Unknown]
  - Weight increased [Unknown]
  - Cardiac failure [Unknown]
  - Blood glucose increased [Unknown]
  - Oedema peripheral [Unknown]
  - Swelling [Unknown]

NARRATIVE: CASE EVENT DATE: 201207
